FAERS Safety Report 5644385-7 (Version None)
Quarter: 2008Q1

REPORT INFORMATION
  Report Type: 
  Country: None (occurrence: None)
  Receive Date: 20080229
  Receipt Date: 20080218
  Transmission Date: 20080703
  Serious: Yes (Other)
  Sender: FDA-Public Use
  Company Number: ID-AMGEN-US266956

PATIENT
  Age: 60 Year
  Sex: Female

DRUGS (1)
  1. NEULASTIM [Suspect]
     Indication: DRUG USE FOR UNKNOWN INDICATION
     Route: 042
     Dates: start: 20080216

REACTIONS (1)
  - BACK PAIN [None]
